FAERS Safety Report 12810892 (Version 1)
Quarter: 2016Q4

REPORT INFORMATION
  Report Type: Spontaneous
  Country: US (occurrence: US)
  Receive Date: 20161005
  Receipt Date: 20161005
  Transmission Date: 20170207
  Serious: No
  Sender: FDA-Public Use
  Company Number: US-GLAXOSMITHKLINE-US2016144799

PATIENT
  Sex: Male

DRUGS (1)
  1. ABREVA [Suspect]
     Active Substance: DOCOSANOL
     Indication: RASH
     Dosage: UNK
     Dates: start: 20160928, end: 20161002

REACTIONS (2)
  - Incorrect drug administration duration [Unknown]
  - Off label use [Unknown]
